FAERS Safety Report 17068369 (Version 9)
Quarter: 2022Q2

REPORT INFORMATION
  Report Type: Spontaneous
  Country: GB (occurrence: GB)
  Receive Date: 20191123
  Receipt Date: 20220513
  Transmission Date: 20220721
  Serious: Yes (Hospitalization, Other)
  Sender: FDA-Public Use
  Company Number: None

PATIENT
  Age: 58 Year
  Sex: Male

DRUGS (3)
  1. ONDANSETRON [Suspect]
     Active Substance: ONDANSETRON
     Indication: Nausea
     Dosage: SOLUTION FOR INJECTION AMPOULES, 4 MG / 2 ML
     Route: 042
     Dates: start: 20191013
  2. MEROPENEM [Suspect]
     Active Substance: MEROPENEM
     Indication: Sepsis
     Dosage: 1 GRAM
     Route: 042
     Dates: start: 20191013
  3. MEROPENEM [Concomitant]
     Active Substance: MEROPENEM
     Indication: Sepsis
     Dosage: 1 G, TID (1 GRAM, 3 TIMES A DAY,(3 G,1 DAY)
     Route: 042

REACTIONS (6)
  - Injection site pain [Recovering/Resolving]
  - Injection site swelling [Recovering/Resolving]
  - Injection site extravasation [Recovering/Resolving]
  - Extravasation [Recovering/Resolving]
  - Peripheral swelling [Unknown]
  - Catheter site pain [Recovering/Resolving]

NARRATIVE: CASE EVENT DATE: 20191015
